FAERS Safety Report 5084217-1 (Version None)
Quarter: 2006Q3

REPORT INFORMATION
  Report Type: 
  Country: None (occurrence: None)
  Receive Date: 20060821
  Receipt Date: 20051213
  Transmission Date: 20061208
  Serious: No
  Sender: FDA-Public Use
  Company Number: US-BRISTOL-MYERS SQUIBB COMPANY-13215041

PATIENT

DRUGS (1)
  1. TEQUIN [Suspect]
     Indication: URINARY TRACT INFECTION

REACTIONS (2)
  - ANXIETY [None]
  - DEPRESSION [None]
